FAERS Safety Report 25773685 (Version 1)
Quarter: 2025Q3

REPORT INFORMATION
  Report Type: Spontaneous
  Country: US (occurrence: None)
  Receive Date: 20250907
  Receipt Date: 20250907
  Transmission Date: 20251020
  Serious: Yes (Other)
  Sender: FDA-CTU
  Company Number: None

PATIENT
  Age: 34 Year
  Sex: Female
  Weight: 53.55 kg

DRUGS (1)
  1. CIPROFLOXACIN [Suspect]
     Active Substance: CIPROFLOXACIN
     Indication: Urinary tract infection
     Dosage: 2 TOT -TOTAL DAILY ORAL ?
     Route: 048
     Dates: start: 202508, end: 20250830

REACTIONS (18)
  - Neuralgia [None]
  - Nerve injury [None]
  - Muscular weakness [None]
  - Tendon pain [None]
  - Bone pain [None]
  - Gait disturbance [None]
  - Temperature intolerance [None]
  - Tension headache [None]
  - Migraine [None]
  - Vision blurred [None]
  - Nausea [None]
  - Abdominal pain upper [None]
  - Uterine pain [None]
  - Diarrhoea [None]
  - Condition aggravated [None]
  - Asthma [None]
  - Adnexa uteri pain [None]
  - Product prescribing issue [None]

NARRATIVE: CASE EVENT DATE: 20250813
